FAERS Safety Report 7961954-X (Version None)
Quarter: 2011Q4

REPORT INFORMATION
  Report Type: 
  Country: None (occurrence: None)
  Receive Date: 20111207
  Receipt Date: 20111201
  Transmission Date: 20120403
  Serious: Yes (Death, Other)
  Sender: FDA-Public Use
  Company Number: IR-ROXANE LABORATORIES, INC.-2011-RO-01723RO

PATIENT
  Age: 47 Year
  Sex: Female

DRUGS (2)
  1. COTRIM [Suspect]
     Indication: URINARY TRACT INFECTION
     Dosage: 920 MG
  2. RISPERIDONE [Suspect]
     Indication: ACUTE PSYCHOSIS
     Dosage: 4 MG

REACTIONS (3)
  - ELECTROCARDIOGRAM QT PROLONGED [None]
  - SUDDEN CARDIAC DEATH [None]
  - ELECTROCARDIOGRAM ABNORMAL [None]
